FAERS Safety Report 9006689 (Version 1)
Quarter: 2013Q1

REPORT INFORMATION
  Report Type: Spontaneous
  Country: US (occurrence: US)
  Receive Date: 20130110
  Receipt Date: 20130110
  Transmission Date: 20140127
  Serious: Yes (Other)
  Sender: FDA-Public Use
  Company Number: US-BAYER-2013-003111

PATIENT
  Sex: Female

DRUGS (1)
  1. YASMIN [Suspect]
     Indication: ACNE

REACTIONS (7)
  - Deep vein thrombosis [None]
  - Pulmonary embolism [None]
  - Cholecystectomy [None]
  - Injury [None]
  - Pain [None]
  - Anxiety [None]
  - Pain [None]
